FAERS Safety Report 5585696-3 (Version None)
Quarter: 2008Q1

REPORT INFORMATION
  Report Type: 
  Country: None (occurrence: None)
  Receive Date: 20080109
  Receipt Date: 20070925
  Transmission Date: 20080703
  Serious: Yes (Other)
  Sender: FDA-Public Use
  Company Number: AU-JNJFOC-20070905090

PATIENT

DRUGS (1)
  1. OFLOXACIN [Suspect]
     Indication: KERATITIS BACTERIAL
     Route: 065

REACTIONS (2)
  - DRUG INEFFECTIVE [None]
  - KERATITIS BACTERIAL [None]
